FAERS Safety Report 12782612 (Version 1)
Quarter: 2016Q3

REPORT INFORMATION
  Report Type: Spontaneous
  Country: US (occurrence: US)
  Receive Date: 20160927
  Receipt Date: 20160927
  Transmission Date: 20161109
  Serious: No
  Sender: FDA-Public Use
  Company Number: US-BIOGEN-2016BI00291849

PATIENT
  Sex: Female

DRUGS (1)
  1. AVONEX [Suspect]
     Active Substance: INTERFERON BETA-1A
     Indication: MULTIPLE SCLEROSIS
     Route: 065
     Dates: start: 20050612

REACTIONS (12)
  - Influenza like illness [Unknown]
  - Pain [Unknown]
  - Balance disorder [Not Recovered/Not Resolved]
  - Drug dose omission [Unknown]
  - Hypoaesthesia [Unknown]
  - Burning sensation [Unknown]
  - Vertigo [Unknown]
  - Malaise [Unknown]
  - Multiple sclerosis relapse [Unknown]
  - Drug effect decreased [Unknown]
  - Pyrexia [Recovered/Resolved]
  - Abasia [Not Recovered/Not Resolved]
